FAERS Safety Report 14294849 (Version 1)
Quarter: 2017Q4

REPORT INFORMATION
  Report Type: Spontaneous
  Country: US (occurrence: US)
  Receive Date: 20171218
  Receipt Date: 20171218
  Transmission Date: 20180321
  Serious: No
  Sender: FDA-Public Use
  Company Number: US-AUROBINDO-AUR-APU-2017-41867

PATIENT
  Sex: Male

DRUGS (2)
  1. AMIODARONE HYDROCHLORIDE 200 MG TABLET [Suspect]
     Active Substance: AMIODARONE HYDROCHLORIDE
     Indication: PRODUCT USED FOR UNKNOWN INDICATION
     Dosage: 200 MG, ONCE A DAY
     Route: 065
  2. AMIODARONE HYDROCHLORIDE 200 MG TABLET [Suspect]
     Active Substance: AMIODARONE HYDROCHLORIDE
     Dosage: 200 MG, ONCE A DAY
     Route: 065

REACTIONS (2)
  - Confusional state [Unknown]
  - Abnormal behaviour [Unknown]
